FAERS Safety Report 6774496-4 (Version None)
Quarter: 2010Q2

REPORT INFORMATION
  Report Type: 
  Country: None (occurrence: None)
  Receive Date: 20100617
  Receipt Date: 20100608
  Transmission Date: 20101027
  Serious: Yes (Hospitalization, Other)
  Sender: FDA-Public Use
  Company Number: PHHY2010US37573

PATIENT
  Age: 14 Year
  Sex: Female

DRUGS (2)
  1. MYFORTIC [Suspect]
     Indication: IMMUNOSUPPRESSION
     Dosage: 360 MG, BID
     Route: 048
     Dates: start: 20090916, end: 20100309
  2. AZATHIOPRINE [Concomitant]

REACTIONS (7)
  - APOPTOSIS [None]
  - COLITIS [None]
  - DIARRHOEA [None]
  - GASTROINTESTINAL TOXICITY [None]
  - INFLAMMATORY BOWEL DISEASE [None]
  - METAPLASIA [None]
  - POLYGLANDULAR DISORDER [None]
